FAERS Safety Report 5043999-5 (Version None)
Quarter: 2006Q2

REPORT INFORMATION
  Report Type: 
  Country: None (occurrence: None)
  Receive Date: 20060601
  Receipt Date: 20060403
  Transmission Date: 20061013
  Serious: No
  Sender: FDA-Public Use
  Company Number: US200604000499

PATIENT
  Sex: Female

DRUGS (2)
  1. CYMBALTA [Suspect]
     Indication: PAIN
     Dosage: 30 MG, EACH MORNING
     Dates: start: 20060331
  2. LEXAPRO [Concomitant]

REACTIONS (3)
  - DEPRESSION [None]
  - MALAISE [None]
  - TEARFULNESS [None]
